FAERS Safety Report 12804787 (Version 1)
Quarter: 2016Q4

REPORT INFORMATION
  Report Type: Spontaneous
  Country: US (occurrence: US)
  Receive Date: 20161003
  Receipt Date: 20161003
  Transmission Date: 20170207
  Serious: Yes (Other)
  Sender: FDA-Public Use
  Company Number: US-ELI_LILLY_AND_COMPANY-US201609009480

PATIENT
  Age: 57 Year
  Sex: Female

DRUGS (23)
  1. TIZANIDINE. [Concomitant]
     Active Substance: TIZANIDINE
  2. PENTASA [Concomitant]
     Active Substance: MESALAMINE
  3. CREON [Concomitant]
     Active Substance: PANCRELIPASE AMYLASE\PANCRELIPASE LIPASE\PANCRELIPASE PROTEASE
  4. NEXIUM [Concomitant]
     Active Substance: ESOMEPRAZOLE MAGNESIUM
  5. OCUVIT [Concomitant]
  6. RANITIDINE. [Concomitant]
     Active Substance: RANITIDINE
  7. VITAMIN B12 [Concomitant]
     Active Substance: CYANOCOBALAMIN
  8. HUMALOG MIX75/25 [Suspect]
     Active Substance: INSULIN LISPRO
     Indication: TYPE 2 DIABETES MELLITUS
     Dosage: UNK UNK, PRN
     Route: 065
     Dates: start: 201607
  9. LIDODERM [Concomitant]
     Active Substance: LIDOCAINE
  10. TRIAMCINOLONE [Concomitant]
     Active Substance: TRIAMCINOLONE
  11. ALBUTEROL                          /00139501/ [Concomitant]
     Active Substance: ALBUTEROL
  12. LYRICA [Concomitant]
     Active Substance: PREGABALIN
  13. SPIRONOLACTONE. [Concomitant]
     Active Substance: SPIRONOLACTONE
  14. PROMETHAZINE [Concomitant]
     Active Substance: PROMETHAZINE\PROMETHAZINE HYDROCHLORIDE
  15. METFORMIN [Concomitant]
     Active Substance: METFORMIN HYDROCHLORIDE
  16. LORAZEPAM. [Concomitant]
     Active Substance: LORAZEPAM
  17. FOLIC ACID. [Concomitant]
     Active Substance: FOLIC ACID
  18. TRAMADOL. [Concomitant]
     Active Substance: TRAMADOL
  19. NYAMYC [Concomitant]
     Active Substance: NYSTATIN
  20. METAMUCIL [Concomitant]
     Active Substance: PLANTAGO SEED
  21. MOMETASONE [Concomitant]
     Active Substance: MOMETASONE
  22. RESTASIS [Concomitant]
     Active Substance: CYCLOSPORINE
  23. CARAFATE [Concomitant]
     Active Substance: SUCRALFATE

REACTIONS (3)
  - Blood glucose increased [Recovered/Resolved]
  - Thrombosis [Unknown]
  - Injury associated with device [Unknown]

NARRATIVE: CASE EVENT DATE: 20160727
